FAERS Safety Report 17090852 (Version 1)
Quarter: 2019Q4

REPORT INFORMATION
  Report Type: Spontaneous
  Country: CA (occurrence: CA)
  Receive Date: 20191129
  Receipt Date: 20191129
  Transmission Date: 20200122
  Serious: Yes (Hospitalization)
  Sender: FDA-Public Use
  Company Number: CA-AUROBINDO-AUR-APL-2019-075368

PATIENT
  Age: 55 Year
  Sex: Female

DRUGS (2)
  1. GRAPEFRUIT. [Concomitant]
     Active Substance: GRAPEFRUIT
     Indication: PRODUCT USED FOR UNKNOWN INDICATION
     Dosage: UNK
     Route: 065
  2. QUETIAPINE FILM-COATED TABLET [Suspect]
     Active Substance: QUETIAPINE
     Indication: PRODUCT USED FOR UNKNOWN INDICATION
     Dosage: 25.0 MILLIGRAM, AS REQUIRED
     Route: 048

REACTIONS (2)
  - Psychotic disorder [Recovered/Resolved]
  - Impulse-control disorder [Recovered/Resolved]
